FAERS Safety Report 9126427 (Version 2)
Quarter: 2013Q2

REPORT INFORMATION
  Report Type: Spontaneous
  Country: US (occurrence: US)
  Receive Date: 20130228
  Receipt Date: 20130417
  Transmission Date: 20140414
  Serious: Yes (Other)
  Sender: FDA-Public Use
  Company Number: US-AMGEN-USASP2013012098

PATIENT
  Age: 81 Year
  Sex: Female
  Weight: 47.62 kg

DRUGS (9)
  1. ENBREL [Suspect]
     Indication: RHEUMATOID ARTHRITIS
     Dosage: 25 MG, 2 TIMES/WK
     Route: 058
     Dates: end: 201110
  2. ORENCIA [Suspect]
     Indication: RHEUMATOID ARTHRITIS
     Dosage: 125 MG, QWK
     Route: 058
     Dates: start: 201207, end: 201211
  3. HUMIRA [Concomitant]
     Dosage: 40 MG/0.8
  4. PREDNISONE [Concomitant]
     Dosage: 50 MG, UNK
  5. PREDNISONE [Concomitant]
     Dosage: 10 MG, QD
  6. METHOTREXATE [Concomitant]
     Dosage: 2.5 MG, UNK
  7. METHOTREXATE [Concomitant]
     Dosage: 7.5 MG, QWK
  8. OXYCODONE [Concomitant]
     Dosage: 5 MG, UNK
  9. DURAGESIC                          /00174601/ [Concomitant]
     Dosage: 100 MCG/H, UNK

REACTIONS (4)
  - Impaired healing [Unknown]
  - Bunion [Unknown]
  - Clostridium difficile infection [Unknown]
  - Bronchitis [Unknown]
